FAERS Safety Report 16449596 (Version 1)
Quarter: 2019Q2

REPORT INFORMATION
  Report Type: Spontaneous
  Country: US (occurrence: US)
  Receive Date: 20190619
  Receipt Date: 20190619
  Transmission Date: 20190711
  Serious: No
  Sender: FDA-Public Use
  Company Number: US-TEVA-2019-US-1054741

PATIENT
  Sex: Male

DRUGS (1)
  1. CYCLOSPORINE MODIFIED [Suspect]
     Active Substance: CYCLOSPORINE
     Indication: APLASTIC ANAEMIA
     Dosage: SOFT GELATIN CAPSULES
     Route: 065
     Dates: start: 2018

REACTIONS (3)
  - Cyst [Unknown]
  - Nodule [Unknown]
  - Product substitution issue [Unknown]
